FAERS Safety Report 18944340 (Version 1)
Quarter: 2021Q1

REPORT INFORMATION
  Report Type: Spontaneous
  Country: DE (occurrence: DE)
  Receive Date: 20210226
  Receipt Date: 20210226
  Transmission Date: 20210420
  Serious: Yes (Hospitalization, Other)
  Sender: FDA-Public Use
  Company Number: DE-AUROBINDO-AUR-APL-2021-007794

PATIENT
  Age: 18 Year
  Sex: Female

DRUGS (5)
  1. QUETIAPINE FILM?COATED TABLET [Suspect]
     Active Substance: QUETIAPINE
     Indication: SCHIZOAFFECTIVE DISORDER
     Dosage: 700 MICROGRAM, ONCE A DAY
     Route: 048
  2. QUETIAPINE FILM?COATED TABLET [Suspect]
     Active Substance: QUETIAPINE
     Dosage: 1000 MILLIGRAM, ONCE A DAY
     Route: 048
  3. RISPERIDONE. [Suspect]
     Active Substance: RISPERIDONE
     Indication: SCHIZOAFFECTIVE DISORDER
     Dosage: 7 MILLIGRAM, ONCE A DAY
     Route: 065
  4. MIDAZOLAM. [Suspect]
     Active Substance: MIDAZOLAM
     Indication: PSYCHOTIC SYMPTOM
     Dosage: 2 MILLIGRAM
     Route: 042
  5. DIAZEPAM. [Suspect]
     Active Substance: DIAZEPAM
     Indication: SCHIZOAFFECTIVE DISORDER
     Dosage: 30 MILLIGRAM, ONCE A DAY
     Route: 065

REACTIONS (6)
  - Seizure [Unknown]
  - Fear [Unknown]
  - Aggression [Unknown]
  - Memory impairment [Unknown]
  - Exposure during pregnancy [Unknown]
  - Drug ineffective [Unknown]
